FAERS Safety Report 17877190 (Version 2)
Quarter: 2020Q2

REPORT INFORMATION
  Report Type: Spontaneous
  Country: US (occurrence: US)
  Receive Date: 20200609
  Receipt Date: 20200619
  Transmission Date: 20200714
  Serious: Yes (Other)
  Sender: FDA-Public Use
  Company Number: US-GLAXOSMITHKLINE-US2020AMR093257

PATIENT
  Sex: Female

DRUGS (3)
  1. ZEJULA [Suspect]
     Active Substance: NIRAPARIB
     Dosage: 300 MG, QD
     Route: 065
  2. ZEJULA [Suspect]
     Active Substance: NIRAPARIB
     Dosage: 200 MG, QD
     Route: 065
  3. ZEJULA [Suspect]
     Active Substance: NIRAPARIB
     Indication: OVARIAN CANCER
     Dosage: 300 MG, QD
     Route: 065
     Dates: start: 20200519

REACTIONS (23)
  - Dizziness [Unknown]
  - Gastrooesophageal reflux disease [Unknown]
  - Pain [Unknown]
  - Hypertension [Unknown]
  - Pain in extremity [Unknown]
  - Fall [Unknown]
  - Haemorrhagic disorder [Unknown]
  - Anxiety [Unknown]
  - Decreased appetite [Unknown]
  - Sneezing [Unknown]
  - Nasal congestion [Unknown]
  - Hypoaesthesia [Unknown]
  - Sensation of foreign body [Unknown]
  - Chest pain [Unknown]
  - Nausea [Unknown]
  - Skin disorder [Unknown]
  - Neuropathy peripheral [Unknown]
  - Headache [Unknown]
  - Blood pressure abnormal [Unknown]
  - Photosensitivity reaction [Unknown]
  - Abdominal discomfort [Unknown]
  - Memory impairment [Unknown]
  - Drug monitoring procedure not performed [Unknown]
